FAERS Safety Report 19467877 (Version 1)
Quarter: 2021Q2

REPORT INFORMATION
  Report Type: Other
  Country: DE (occurrence: DE)
  Receive Date: 20210628
  Receipt Date: 20210628
  Transmission Date: 20210717
  Serious: Yes (Death, Other)
  Sender: FDA-Public Use
  Company Number: DE-ROCHE-2854915

PATIENT
  Age: 59 Year
  Sex: Male

DRUGS (10)
  1. CYCLOPHOSPHAMIDE. [Suspect]
     Active Substance: CYCLOPHOSPHAMIDE
     Indication: DIFFUSE LARGE B-CELL LYMPHOMA
     Route: 065
  2. TOCILIZUMAB. [Suspect]
     Active Substance: TOCILIZUMAB
     Indication: PYREXIA
     Route: 042
  3. PREDNISONE. [Suspect]
     Active Substance: PREDNISONE
     Indication: DIFFUSE LARGE B-CELL LYMPHOMA
     Route: 065
  4. TRIMETHOPRIM SULFAMETHOXAZOLE [Concomitant]
     Active Substance: SULFAMETHOXAZOLE\TRIMETHOPRIM
  5. ACYCLOVIR. [Concomitant]
     Active Substance: ACYCLOVIR
  6. FLUDARABINE [Concomitant]
     Active Substance: FLUDARABINE PHOSPHATE
  7. RITUXIMAB. [Suspect]
     Active Substance: RITUXIMAB
     Indication: DIFFUSE LARGE B-CELL LYMPHOMA
     Route: 065
  8. DOXORUBICIN [Suspect]
     Active Substance: DOXORUBICIN
     Indication: DIFFUSE LARGE B-CELL LYMPHOMA
     Route: 065
  9. VINCRISTINE [Suspect]
     Active Substance: VINCRISTINE
     Indication: DIFFUSE LARGE B-CELL LYMPHOMA
     Route: 065
  10. POSACONAZOLE [Concomitant]
     Active Substance: POSACONAZOLE

REACTIONS (15)
  - Central nervous system infection [Unknown]
  - Neutropenia [Unknown]
  - Fungal infection [Unknown]
  - Aspergillus infection [Unknown]
  - Pneumonia fungal [Fatal]
  - Escherichia sepsis [Unknown]
  - Urinary tract infection [Unknown]
  - Myelosuppression [Unknown]
  - Immune effector cell-associated neurotoxicity syndrome [Unknown]
  - Colitis [Unknown]
  - Bordetella infection [Recovered/Resolved]
  - Upper respiratory tract infection [Unknown]
  - Cytokine release syndrome [Unknown]
  - Candida infection [Unknown]
  - Septic shock [Unknown]
